FAERS Safety Report 15247146 (Version 3)
Quarter: 2021Q3

REPORT INFORMATION
  Report Type: Spontaneous
  Country: US (occurrence: US)
  Receive Date: 20180807
  Receipt Date: 20210816
  Transmission Date: 20211014
  Serious: Yes (Other)
  Sender: FDA-Public Use
  Company Number: US-AUROBINDO-AUR-APL-2018-038142

PATIENT
  Age: 84 Year
  Sex: Male

DRUGS (8)
  1. ASPIRIN SODIUM [Concomitant]
     Active Substance: ASPIRIN SODIUM
     Indication: PRODUCT USED FOR UNKNOWN INDICATION
     Dosage: UNK
     Route: 065
  2. LEVOTHYROXINE. [Concomitant]
     Active Substance: LEVOTHYROXINE
     Indication: PRODUCT USED FOR UNKNOWN INDICATION
     Dosage: UNK
     Route: 065
  3. NAPROXEN. [Suspect]
     Active Substance: NAPROXEN
     Indication: LUMBAR SPINAL STENOSIS
     Dosage: 220 MILLIGRAM
     Route: 065
  4. FLECAINIDE [Concomitant]
     Active Substance: FLECAINIDE
     Indication: ATRIAL FIBRILLATION
     Dosage: TAKEN FOR SEVERAL YEARS
     Route: 065
  5. AMLODIPINE [Concomitant]
     Active Substance: AMLODIPINE BESYLATE
     Indication: PRODUCT USED FOR UNKNOWN INDICATION
     Dosage: UNK
     Route: 065
  6. ATORVASTATIN [Concomitant]
     Active Substance: ATORVASTATIN
     Indication: PRODUCT USED FOR UNKNOWN INDICATION
     Dosage: UNK
     Route: 065
  7. CANDESARTAN. [Concomitant]
     Active Substance: CANDESARTAN
     Indication: PRODUCT USED FOR UNKNOWN INDICATION
     Dosage: UNK
     Route: 065
  8. NAPROXEN. [Suspect]
     Active Substance: NAPROXEN
     Dosage: 250 MILLIGRAM, TWO TIMES A DAY
     Route: 065

REACTIONS (5)
  - Dyspnoea [Recovered/Resolved]
  - Night sweats [Recovered/Resolved]
  - Eosinophilic pneumonia [Recovered/Resolved]
  - Cough [Recovered/Resolved]
  - Interstitial lung disease [Recovered/Resolved]
